FAERS Safety Report 22541378 (Version 1)
Quarter: 2023Q2

REPORT INFORMATION
  Report Type: Report from Study
  Country: US (occurrence: US)
  Receive Date: 20230609
  Receipt Date: 20230609
  Transmission Date: 20230722
  Serious: Yes (Other)
  Sender: FDA-Public Use
  Company Number: US-BAYER-2023A046561

PATIENT
  Age: 77 Year
  Sex: Male

DRUGS (12)
  1. NUBEQA [Suspect]
     Active Substance: DAROLUTAMIDE
     Indication: Hormone-refractory prostate cancer
     Dosage: 600 MG, BID
     Route: 048
     Dates: start: 20230330
  2. DOCETAXEL [Concomitant]
     Active Substance: DOCETAXEL
  3. ZOLEDRONIC ACID [Concomitant]
     Active Substance: ZOLEDRONIC ACID
  4. CALTRATE WITH VITAMIN D [Concomitant]
     Active Substance: CALCIUM CARBONATE\CHOLECALCIFEROL
  5. LUPRON [Concomitant]
     Active Substance: LEUPROLIDE ACETATE
  6. TAMSULOSIN [Concomitant]
     Active Substance: TAMSULOSIN
  7. TYLENOL [Concomitant]
     Active Substance: ACETAMINOPHEN
  8. FISH OIL [Concomitant]
     Active Substance: FISH OIL
  9. SIMVASTATIN [Concomitant]
     Active Substance: SIMVASTATIN
  10. DEEP BLUE POLYPHENOL COMPLEX [Concomitant]
  11. MITO2MAX [Concomitant]
  12. HYDROCODONE [Concomitant]
     Active Substance: HYDROCODONE

REACTIONS (15)
  - Thrombocytopenia [Recovering/Resolving]
  - Back pain [Recovering/Resolving]
  - Pain in extremity [Recovering/Resolving]
  - Oral pain [None]
  - Herpes zoster [Recovering/Resolving]
  - Saliva altered [Recovered/Resolved]
  - Nausea [None]
  - Pain [None]
  - Product dose omission issue [None]
  - Fatigue [None]
  - Gingival pain [Recovering/Resolving]
  - Ageusia [Recovering/Resolving]
  - Skin exfoliation [Recovering/Resolving]
  - Stomatitis [Recovering/Resolving]
  - Fatigue [Recovering/Resolving]

NARRATIVE: CASE EVENT DATE: 20230401
